FAERS Safety Report 12635960 (Version 1)
Quarter: 2016Q3

REPORT INFORMATION
  Report Type: Spontaneous
  Country: US (occurrence: US)
  Receive Date: 20160809
  Receipt Date: 20160809
  Transmission Date: 20161109
  Serious: No
  Sender: FDA-Public Use
  Company Number: US-GLENMARK PHARMACEUTICALS INC, USA.-2016GMK022708

PATIENT

DRUGS (2)
  1. ONDANSETRON ORALLY DISINTEGRATING TABLETS [Suspect]
     Active Substance: ONDANSETRON
     Indication: NAUSEA
     Dosage: 1 DF, BID
     Route: 048
     Dates: start: 201604, end: 201604
  2. SYNTHROID [Concomitant]
     Active Substance: LEVOTHYROXINE SODIUM
     Indication: HYPOTHYROIDISM
     Dosage: 50 ?G, QD
     Route: 048

REACTIONS (3)
  - Headache [Recovered/Resolved]
  - Drug ineffective for unapproved indication [Unknown]
  - Drug ineffective [None]

NARRATIVE: CASE EVENT DATE: 201604
